FAERS Safety Report 7382476-3 (Version None)
Quarter: 2011Q1

REPORT INFORMATION
  Report Type: 
  Country: None (occurrence: None)
  Receive Date: 20110329
  Receipt Date: 20110316
  Transmission Date: 20110831
  Serious: Yes (Other)
  Sender: FDA-Public Use
  Company Number: CA-BAYER-2011-023603

PATIENT
  Sex: Female

DRUGS (1)
  1. YASMIN 21 [Suspect]
     Indication: PRODUCT USED FOR UNKNOWN INDICATION
     Dosage: UNK
     Route: 048
     Dates: start: 20101101, end: 20110312

REACTIONS (2)
  - FEELING HOT [None]
  - PAIN IN EXTREMITY [None]
